FAERS Safety Report 21565637 (Version 1)
Quarter: 2022Q4

REPORT INFORMATION
  Report Type: Spontaneous
  Country: US (occurrence: None)
  Receive Date: 20221107
  Receipt Date: 20221107
  Transmission Date: 20230112
  Serious: Yes (Hospitalization)
  Sender: FDA-Public Use
  Company Number: None

PATIENT
  Age: 61 Year
  Sex: Male

DRUGS (1)
  1. BEBTELOVIMAB [Suspect]
     Active Substance: BEBTELOVIMAB
     Indication: COVID-19
     Dosage: FREQUENCY : ONCE;?
     Route: 042
     Dates: start: 20221013, end: 20221013

REACTIONS (7)
  - Myalgia [None]
  - Hypokalaemia [None]
  - Hypomagnesaemia [None]
  - Pain [None]
  - Drug ineffective [None]
  - Diarrhoea [None]
  - Acute kidney injury [None]

NARRATIVE: CASE EVENT DATE: 20221015
